FAERS Safety Report 8745935 (Version 2)
Quarter: 2012Q4

REPORT INFORMATION
  Report Type: 
  Country: JP (occurrence: JP)
  Receive Date: 20120827
  Receipt Date: 20120903
  Transmission Date: 20130627
  Serious: Yes (Death)
  Sender: FDA-Public Use
  Company Number: JP-ELI_LILLY_AND_COMPANY-JP201208006579

PATIENT
  Age: 85 Year
  Sex: Female

DRUGS (6)
  1. ALIMTA [Suspect]
     Indication: LUNG ADENOCARCINOMA STAGE IV
     Dosage: 600 mg, UNK
     Route: 042
     Dates: start: 20120816, end: 20120816
  2. FRESMIN [Concomitant]
     Dosage: 1 mg, qd
     Route: 030
     Dates: start: 201208
  3. PANVITAN [Concomitant]
     Dosage: 1 g, qd
     Route: 048
     Dates: start: 201208
  4. BAYASPIRIN [Concomitant]
     Indication: ANEURYSM
     Route: 048
  5. REBAMIPIDE [Concomitant]
     Indication: THORACIC CAVITY DRAINAGE
     Route: 048
  6. LOXONIN [Concomitant]
     Indication: THORACIC CAVITY DRAINAGE
     Route: 048

REACTIONS (1)
  - Interstitial lung disease [Fatal]
